FAERS Safety Report 5934868-4 (Version None)
Quarter: 2008Q4

REPORT INFORMATION
  Report Type: 
  Country: None (occurrence: None)
  Receive Date: 20081029
  Receipt Date: 20080908
  Transmission Date: 20090506
  Serious: No
  Sender: FDA-Public Use
  Company Number: US-BAUSCH-2008BL003868

PATIENT
  Sex: Female

DRUGS (1)
  1. NEOMYCIN AND POLYMYXIN B SULFATES AND BACITRACIN ZINC [Suspect]
     Indication: EYE INFECTION
     Route: 047
     Dates: start: 20080904

REACTIONS (1)
  - VISION BLURRED [None]
